FAERS Safety Report 7815477-9 (Version None)
Quarter: 2011Q4

REPORT INFORMATION
  Report Type: 
  Country: None (occurrence: None)
  Receive Date: 20111014
  Receipt Date: 20111011
  Transmission Date: 20120403
  Serious: Yes (Death, Hospitalization, Other)
  Sender: FDA-Public Use
  Company Number: PHEH2010US02407

PATIENT
  Sex: Female

DRUGS (19)
  1. PLETAL [Concomitant]
  2. ARIMIDEX [Concomitant]
  3. LOVASTATIN [Concomitant]
  4. BISACODYL [Concomitant]
  5. LANOXIN [Concomitant]
  6. LISINOPRIL [Concomitant]
  7. CALCIUM CARBONATE [Concomitant]
  8. DILTIAZEM HCL [Concomitant]
     Indication: HYPERTENSION
  9. BISOPROLOL [Concomitant]
     Dosage: 5 MG, UNK
  10. ZOMETA [Suspect]
     Indication: BREAST CANCER
     Route: 042
  11. COREG [Concomitant]
     Indication: CARDIAC FAILURE
  12. FASLODEX [Concomitant]
  13. DOCUSATE [Concomitant]
     Dosage: 100 MG, UNK
  14. RADIATION THERAPY [Concomitant]
  15. PLAVIX [Concomitant]
  16. FUROSEMIDE [Concomitant]
  17. CARDIZEM [Concomitant]
  18. HEPARIN [Concomitant]
  19. WARFARIN SODIUM [Concomitant]

REACTIONS (71)
  - ANXIETY [None]
  - ARTERIOSCLEROSIS CORONARY ARTERY [None]
  - PERIPHERAL VASCULAR DISORDER [None]
  - SCOLIOSIS [None]
  - PAIN IN EXTREMITY [None]
  - ARTHRALGIA [None]
  - CEREBROVASCULAR ACCIDENT [None]
  - SPINAL OSTEOARTHRITIS [None]
  - DEEP VEIN THROMBOSIS [None]
  - CALCINOSIS [None]
  - SPLENIC GRANULOMA [None]
  - MITRAL VALVE INCOMPETENCE [None]
  - RED BLOOD CELL COUNT DECREASED [None]
  - SKIN ULCER [None]
  - FACET JOINT SYNDROME [None]
  - MASTICATION DISORDER [None]
  - METASTASES TO LUNG [None]
  - HYPOKALAEMIA [None]
  - ALOPECIA [None]
  - DECREASED INTEREST [None]
  - MYOCARDIAL INFARCTION [None]
  - CHRONIC OBSTRUCTIVE PULMONARY DISEASE [None]
  - RENAL ARTERY STENOSIS [None]
  - WOUND [None]
  - ATRIOVENTRICULAR BLOCK FIRST DEGREE [None]
  - MALIGNANT MELANOMA IN SITU [None]
  - BRADYCARDIA [None]
  - PELVIC FRACTURE [None]
  - HYPONATRAEMIA [None]
  - INCONTINENCE [None]
  - CORONARY ARTERY DISEASE [None]
  - METASTASES TO BONE [None]
  - FATIGUE [None]
  - ATELECTASIS [None]
  - MACULAR DEGENERATION [None]
  - HYPERLIPIDAEMIA [None]
  - OEDEMA PERIPHERAL [None]
  - VERTEBRAL FORAMINAL STENOSIS [None]
  - TOOTH ABSCESS [None]
  - ABDOMINAL PAIN [None]
  - GENERAL PHYSICAL HEALTH DETERIORATION [None]
  - HYPERTENSION [None]
  - OSTEOARTHRITIS [None]
  - RENAL CYST [None]
  - ATRIAL FIBRILLATION [None]
  - TRICUSPID VALVE INCOMPETENCE [None]
  - PERIODONTITIS [None]
  - GAIT DISTURBANCE [None]
  - DYSPNOEA [None]
  - DEATH [None]
  - OSTEONECROSIS OF JAW [None]
  - PAIN [None]
  - CARDIOMEGALY [None]
  - PANCREATIC CYST [None]
  - INTERMITTENT CLAUDICATION [None]
  - FALL [None]
  - ISCHAEMIC CARDIOMYOPATHY [None]
  - OSTEOPOROSIS [None]
  - EXOSTOSIS [None]
  - PLEURAL EFFUSION [None]
  - PROTHROMBIN TIME PROLONGED [None]
  - DEAFNESS [None]
  - ANAEMIA [None]
  - DYSURIA [None]
  - ECCHYMOSIS [None]
  - CARDIAC FAILURE [None]
  - FEMORAL ARTERIAL STENOSIS [None]
  - LUMBAR SPINAL STENOSIS [None]
  - HAEMOGLOBIN DECREASED [None]
  - METASTASES TO CHEST WALL [None]
  - SUPRAVENTRICULAR TACHYCARDIA [None]
